FAERS Safety Report 5211770-7 (Version None)
Quarter: 2007Q1

REPORT INFORMATION
  Report Type: 
  Country: None (occurrence: None)
  Receive Date: 20070116
  Receipt Date: 20061228
  Transmission Date: 20070707
  Serious: Yes (Hospitalization)
  Sender: FDA-Public Use
  Company Number: 2007CT000002

PATIENT
  Age: 50 Year
  Sex: Female

DRUGS (15)
  1. VENTAVIS [Suspect]
     Indication: PULMONARY HYPERTENSION
     Dosage: SEE IMAGE
     Route: 055
     Dates: start: 20061029, end: 20061104
  2. VENTAVIS [Suspect]
     Indication: PULMONARY HYPERTENSION
     Dosage: SEE IMAGE
     Route: 055
     Dates: start: 20061105, end: 20061127
  3. VENTAVIS [Suspect]
     Indication: PULMONARY HYPERTENSION
     Dosage: SEE IMAGE
     Route: 055
     Dates: start: 20061214, end: 20061221
  4. WARFARIN SODIUM [Suspect]
     Dosage: UNKNOWN
  5. SIMOVIL ^MSD^ [Concomitant]
  6. COLCHICINE [Concomitant]
  7. OMEPRAZOLE [Concomitant]
  8. FOLIC ACID [Concomitant]
  9. ALOSPIRONE [Concomitant]
  10. FUROSEMIDE [Concomitant]
  11. VITAMIN CAP [Concomitant]
  12. CALTRATE +D [Concomitant]
  13. DIGOXIN [Concomitant]
  14. RAMIPRIL [Concomitant]
  15. RAMIDRONIC ACID [Concomitant]

REACTIONS (3)
  - GINGIVAL BLEEDING [None]
  - HAEMOGLOBIN DECREASED [None]
  - INTERNATIONAL NORMALISED RATIO INCREASED [None]
